FAERS Safety Report 16094925 (Version 1)
Quarter: 2019Q1

REPORT INFORMATION
  Report Type: Spontaneous
  Country: US (occurrence: US)
  Receive Date: 20190218
  Receipt Date: 20190218
  Transmission Date: 20190418
  Serious: No
  Sender: FDA-Public Use
  Company Number: None

PATIENT
  Age: 38 Year
  Sex: Male

DRUGS (1)
  1. BIKTARVY [Suspect]
     Active Substance: BICTEGRAVIR SODIUM\EMTRICITABINE\TENOFOVIR ALAFENAMIDE FUMARATE
     Dates: start: 20190213, end: 20190218

REACTIONS (5)
  - Dehydration [None]
  - Vomiting [None]
  - Diarrhoea [None]
  - Gastrointestinal disorder [None]
  - Nausea [None]

NARRATIVE: CASE EVENT DATE: 20190218
